FAERS Safety Report 4742914-9 (Version None)
Quarter: 2005Q3

REPORT INFORMATION
  Report Type: 
  Country: None (occurrence: None)
  Receive Date: 20050811
  Receipt Date: 20011119
  Transmission Date: 20060218
  Serious: Yes (Death, Hospitalization)
  Sender: FDA-Public Use
  Company Number: PHBS2001BR11721

PATIENT
  Age: 23 Year
  Sex: Male

DRUGS (3)
  1. RIFAMPICIN [Suspect]
     Indication: LEPROMATOUS LEPROSY
     Dosage: UNK, QMO
     Route: 065
  2. CLOFAZIMINE [Suspect]
     Indication: LEPROMATOUS LEPROSY
     Route: 065
  3. DAPSONE [Suspect]
     Indication: LEPROMATOUS LEPROSY
     Dates: start: 19990901, end: 20000601

REACTIONS (11)
  - APLASTIC ANAEMIA [None]
  - EPISTAXIS [None]
  - GRANULOCYTE COUNT DECREASED [None]
  - HAEMATOCRIT DECREASED [None]
  - HAEMORRHAGE [None]
  - MEGAKARYOCYTES DECREASED [None]
  - NOSOCOMIAL INFECTION [None]
  - PANCYTOPENIA [None]
  - PLATELET COUNT DECREASED [None]
  - RED BLOOD CELL COUNT DECREASED [None]
  - WHITE BLOOD CELL COUNT DECREASED [None]
